FAERS Safety Report 10910842 (Version 2)
Quarter: 2015Q3

REPORT INFORMATION
  Report Type: Report from Study
  Country: IT (occurrence: IT)
  Receive Date: 20150312
  Receipt Date: 20150923
  Transmission Date: 20151125
  Serious: No
  Sender: FDA-Public Use
  Company Number: IT-ABBVIE-15P-083-1358901-00

PATIENT
  Age: 63 Year
  Sex: Female
  Weight: 75 kg

DRUGS (1)
  1. DUODOPA [Suspect]
     Active Substance: CARBIDOPA\LEVODOPA
     Indication: PARKINSON^S DISEASE
     Dosage: MD 11,5 (+3)?CR 2,1?ED 2,5
     Route: 050
     Dates: start: 20150201

REACTIONS (1)
  - Granuloma [Not Recovered/Not Resolved]

NARRATIVE: CASE EVENT DATE: 201502
